FAERS Safety Report 7330911-9 (Version None)
Quarter: 2011Q1

REPORT INFORMATION
  Report Type: 
  Country: None (occurrence: None)
  Receive Date: 20110225
  Receipt Date: 20110225
  Transmission Date: 20110831
  Serious: Yes (Hospitalization)
  Sender: FDA-Public Use
  Company Number: None

PATIENT
  Sex: Male
  Weight: 81.1 kg

DRUGS (2)
  1. PREDNISONE [Suspect]
     Dosage: 400 MG
  2. VINCRISTINE SULFATE [Suspect]
     Dosage: 4 MG

REACTIONS (4)
  - HAEMOGLOBIN DECREASED [None]
  - PLATELET DISORDER [None]
  - PYREXIA [None]
  - MYELODYSPLASTIC SYNDROME [None]
